FAERS Safety Report 7040513 (Version 2)
Quarter: 2012Q4

REPORT INFORMATION
  Report Type: 
  Country: FR (occurrence: FR)
  Receive Date: 20090702
  Receipt Date: 20120920
  Transmission Date: 20130627
  Serious: Yes (Hospitalization, Disabling)
  Sender: FDA-Public Use
  Company Number: PHHY2009FR25955

PATIENT
  Age: 65 None
  Sex: Female

DRUGS (4)
  1. TASIGNA [Suspect]
     Indication: CHRONIC MYELOID LEUKAEMIA
     Dosage: 400 mg, BID
     Dates: start: 20081118, end: 201002
  2. LOXEN [Concomitant]
     Indication: HYPERTENSION
     Dosage: 20 mg, daily
     Route: 048
  3. GLIVEC [Suspect]
     Indication: CHRONIC MYELOID LEUKAEMIA
     Dosage: 600 mg, daily
     Route: 048
     Dates: start: 200104, end: 2008
  4. SPRYCEL [Suspect]
     Indication: CHRONIC MYELOID LEUKAEMIA

REACTIONS (8)
  - Peripheral arterial occlusive disease [Unknown]
  - Peripheral ischaemia [Unknown]
  - Limb discomfort [Recovered/Resolved with Sequelae]
  - Peripheral artery stenosis [Recovered/Resolved with Sequelae]
  - Cardiac tamponade [Recovered/Resolved with Sequelae]
  - Mitral valve incompetence [Recovered/Resolved with Sequelae]
  - Hepatic function abnormal [Recovered/Resolved with Sequelae]
  - Renal impairment [Recovered/Resolved with Sequelae]
